FAERS Safety Report 5430889-9 (Version None)
Quarter: 2007Q3

REPORT INFORMATION
  Report Type: 
  Country: None (occurrence: None)
  Receive Date: 20070830
  Receipt Date: 20070209
  Transmission Date: 20080115
  Serious: No
  Sender: FDA-Public Use
  Company Number: A0634730A

PATIENT
  Age: 22 Year
  Sex: Female

DRUGS (3)
  1. WELLBUTRIN XL [Suspect]
     Indication: ANXIETY
     Dosage: 150MG PER DAY
     Route: 048
     Dates: start: 20061228, end: 20070101
  2. GUAIFENESIN + PHENYLEPHRINE HYDROCHLORIDE [Suspect]
     Route: 048
     Dates: start: 20061227, end: 20061230
  3. OMNICEF [Suspect]
     Route: 048
     Dates: start: 20061227, end: 20061231

REACTIONS (15)
  - AGITATION [None]
  - DEPRESSION [None]
  - DIZZINESS [None]
  - DRY EYE [None]
  - DRY MOUTH [None]
  - DYSGEUSIA [None]
  - FEELING ABNORMAL [None]
  - HEADACHE [None]
  - HYPOKINESIA [None]
  - INSOMNIA [None]
  - MOUTH ULCERATION [None]
  - MYALGIA [None]
  - PERIPHERAL COLDNESS [None]
  - PRURITUS [None]
  - TINNITUS [None]
